FAERS Safety Report 11626862 (Version 8)
Quarter: 2016Q2

REPORT INFORMATION
  Report Type: Report from Study
  Country: US (occurrence: US)
  Receive Date: 20151013
  Receipt Date: 20160519
  Transmission Date: 20160815
  Serious: No
  Sender: FDA-Public Use
  Company Number: PHEH2015US020318

PATIENT
  Age: 4 Year
  Sex: Female
  Weight: 18.5 kg

DRUGS (5)
  1. ILARIS [Suspect]
     Active Substance: CANAKINUMAB
     Indication: CRYOPYRIN ASSOCIATED PERIODIC SYNDROME
     Dosage: 50 MG, EVEREY 6 WEEKS
     Route: 058
     Dates: start: 20130115
  2. ILARIS [Suspect]
     Active Substance: CANAKINUMAB
     Indication: RHEUMATIC DISORDER
     Dosage: UNK
     Route: 058
     Dates: start: 20130822, end: 20130822
  3. ILARIS [Suspect]
     Active Substance: CANAKINUMAB
     Dosage: UNK
     Route: 058
     Dates: start: 20151202, end: 20151202
  4. ILARIS [Suspect]
     Active Substance: CANAKINUMAB
     Dosage: 50 MG, UNK
     Route: 058
     Dates: start: 20160126
  5. ILARIS [Suspect]
     Active Substance: CANAKINUMAB
     Dosage: UNK
     Route: 058
     Dates: start: 20160218

REACTIONS (5)
  - Body temperature abnormal [Unknown]
  - Upper respiratory tract infection [Recovered/Resolved]
  - Nasopharyngitis [Recovered/Resolved]
  - Inappropriate schedule of drug administration [Unknown]
  - Malaise [Recovered/Resolved]

NARRATIVE: CASE EVENT DATE: 20151003
